FAERS Safety Report 5699717-0 (Version None)
Quarter: 2008Q2

REPORT INFORMATION
  Report Type: 
  Country: None (occurrence: None)
  Receive Date: 20080410
  Receipt Date: 20080331
  Transmission Date: 20081010
  Serious: Yes (Other)
  Sender: FDA-Public Use
  Company Number: PHHY2008AU02601

PATIENT
  Age: 71 Year
  Sex: Male

DRUGS (12)
  1. ZOMETA [Suspect]
     Indication: MULTIPLE MYELOMA
     Dosage: 4 MG/MONTH
     Route: 042
     Dates: start: 20050218
  2. ZOMETA [Suspect]
     Dosage: 3 MG/MONTH
     Dates: end: 20070301
  3. WARFARIN SODIUM [Concomitant]
  4. LASIX [Concomitant]
  5. THALIDOMIDE [Concomitant]
  6. ALDACTONE [Concomitant]
  7. COVERSYL [Concomitant]
  8. ZYLOPRIM [Concomitant]
  9. CORTICOSTEROIDS [Concomitant]
  10. PREDNISOLONE [Concomitant]
     Dosage: 50 MG/DAY
     Dates: start: 20050218
  11. PREDNISOLONE [Concomitant]
     Dosage: 50 MG ONCE EVERY 6 WEEKS
     Dates: end: 20051005
  12. MELPHALAN [Concomitant]
     Dosage: 16 MG X DAYS EVERY 6 WEEKS

REACTIONS (13)
  - BONE DISORDER [None]
  - BONE LESION [None]
  - BONE SWELLING [None]
  - GINGIVAL INFECTION [None]
  - LOOSE TOOTH [None]
  - LYMPHADENOPATHY [None]
  - OSTEOMYELITIS [None]
  - OSTEONECROSIS [None]
  - PAIN IN JAW [None]
  - SEQUESTRECTOMY [None]
  - TENDERNESS [None]
  - TOOTH INFECTION [None]
  - X-RAY ABNORMAL [None]
